FAERS Safety Report 9393223 (Version 2)
Quarter: 2013Q3

REPORT INFORMATION
  Report Type: Spontaneous
  Country: PT (occurrence: PT)
  Receive Date: 20130710
  Receipt Date: 20130828
  Transmission Date: 20140515
  Serious: No
  Sender: FDA-Public Use
  Company Number: PT-ABBOTT-13P-130-1116190-00

PATIENT
  Age: 54 Year
  Sex: Female

DRUGS (4)
  1. HUMIRA [Suspect]
     Indication: RHEUMATOID ARTHRITIS
     Route: 058
     Dates: start: 201304, end: 20130507
  2. HUMIRA [Suspect]
     Route: 058
     Dates: start: 20130821
  3. METHOTREXATE [Concomitant]
     Indication: PRODUCT USED FOR UNKNOWN INDICATION
     Route: 048
  4. PREDNISOLONE [Concomitant]
     Indication: PRODUCT USED FOR UNKNOWN INDICATION
     Route: 048

REACTIONS (4)
  - Skin discolouration [Recovering/Resolving]
  - Skin lesion [Recovering/Resolving]
  - Reactive perforating collagenosis [Recovering/Resolving]
  - Skin ulcer [Recovering/Resolving]
